FAERS Safety Report 14320995 (Version 1)
Quarter: 2017Q4

REPORT INFORMATION
  Report Type: Spontaneous
  Country: US (occurrence: US)
  Receive Date: 20171223
  Receipt Date: 20171223
  Transmission Date: 20180321
  Serious: Yes (Death)
  Sender: FDA-Public Use
  Company Number: US-AMGEN-USASP2017189878

PATIENT
  Sex: Male

DRUGS (1)
  1. IMLYGIC [Suspect]
     Active Substance: TALIMOGENE LAHERPAREPVEC
     Indication: MALIGNANT MELANOMA
     Dosage: UNK (108 STRENGTH)
     Route: 026
     Dates: end: 20171213

REACTIONS (2)
  - Influenza like illness [Unknown]
  - Aortic aneurysm [Fatal]

NARRATIVE: CASE EVENT DATE: 201712
